FAERS Safety Report 7128911-7 (Version None)
Quarter: 2010Q4

REPORT INFORMATION
  Report Type: 
  Country: None (occurrence: None)
  Receive Date: 20101130
  Receipt Date: 20101122
  Transmission Date: 20110411
  Serious: Yes (Hospitalization)
  Sender: FDA-Public Use
  Company Number: A0895014A

PATIENT
  Sex: Female

DRUGS (1)
  1. ADVAIR DISKUS 100/50 [Suspect]
     Route: 065
     Dates: start: 20080101

REACTIONS (2)
  - INTERVERTEBRAL DISC DISORDER [None]
  - SURGERY [None]
